FAERS Safety Report 12220550 (Version 1)
Quarter: 2016Q1

REPORT INFORMATION
  Report Type: Spontaneous
  Country: US (occurrence: US)
  Receive Date: 20160330
  Receipt Date: 20160330
  Transmission Date: 20160526
  Serious: No
  Sender: FDA-Public Use
  Company Number: US-MYLANLABS-2016M1002043

PATIENT
  Age: 53 Year
  Sex: Female
  Weight: 81.63 kg

DRUGS (1)
  1. EMSAM [Suspect]
     Active Substance: SELEGILINE
     Indication: DEPRESSION
     Dosage: 9 MG/24HR, QD
     Route: 062
     Dates: start: 20151119

REACTIONS (4)
  - Application site swelling [Not Recovered/Not Resolved]
  - Application site vesicles [Not Recovered/Not Resolved]
  - Application site pruritus [Not Recovered/Not Resolved]
  - Application site erythema [Not Recovered/Not Resolved]

NARRATIVE: CASE EVENT DATE: 20151119
